FAERS Safety Report 25841241 (Version 2)
Quarter: 2025Q4

REPORT INFORMATION
  Report Type: Spontaneous
  Country: US (occurrence: US)
  Receive Date: 20250924
  Receipt Date: 20251224
  Transmission Date: 20260118
  Serious: No
  Sender: MADRIGAL PHARMACEUTICALS
  Company Number: US-MADRIGAL PHARMACEUTICALS, INC-2025REZ9033

PATIENT

DRUGS (2)
  1. REZDIFFRA [Suspect]
     Active Substance: RESMETIROM
     Indication: Metabolic dysfunction-associated steatohepatitis
     Dosage: 80 MILLIGRAM, QD
     Route: 048
     Dates: start: 202506, end: 2025
  2. REZDIFFRA [Suspect]
     Active Substance: RESMETIROM
     Dosage: 40 MILLIGRAM
     Route: 048
     Dates: start: 2025

REACTIONS (13)
  - Visual impairment [Recovering/Resolving]
  - Lacrimation increased [Recovering/Resolving]
  - Somnolence [Recovering/Resolving]
  - Weight decreased [Unknown]
  - Headache [Recovering/Resolving]
  - Drug hypersensitivity [Recovering/Resolving]
  - Hepatic enzyme increased [Unknown]
  - Diarrhoea [Recovering/Resolving]
  - Dizziness [Recovering/Resolving]
  - Nausea [Recovering/Resolving]
  - Abdominal pain upper [Recovering/Resolving]
  - Wrong technique in product usage process [Unknown]
  - Prescribed underdose [Unknown]

NARRATIVE: CASE EVENT DATE: 20250101
